FAERS Safety Report 23041147 (Version 1)
Quarter: 2023Q4

REPORT INFORMATION
  Report Type: Spontaneous
  Country: GB (occurrence: GB)
  Receive Date: 20231007
  Receipt Date: 20231007
  Transmission Date: 20240109
  Serious: Yes (Death, Other)
  Sender: FDA-Public Use
  Company Number: GB-MHRA-ADR 28213287

PATIENT

DRUGS (1)
  1. POLYETHYLENE GLYCOLS [Suspect]
     Active Substance: POLYETHYLENE GLYCOLS
     Indication: Faecaloma
     Dosage: UNK
     Route: 065

REACTIONS (2)
  - Abdominal distension [Fatal]
  - Cardiac arrest [Fatal]
